FAERS Safety Report 9517286 (Version 2)
Quarter: 2013Q4

REPORT INFORMATION
  Report Type: Spontaneous
  Country: US (occurrence: US)
  Receive Date: 20130911
  Receipt Date: 20131106
  Transmission Date: 20140711
  Serious: No
  Sender: FDA-Public Use
  Company Number: US-ASTRAZENECA-2013SE54975

PATIENT
  Sex: Male

DRUGS (2)
  1. SYMBICORT [Suspect]
     Dosage: 160/4.5 ONE INHALATION  DAILY
     Route: 055
  2. SYMBICORT [Suspect]
     Dosage: 160/4.5 ONE INHALATION TWICE DAILY
     Route: 055

REACTIONS (3)
  - Hearing impaired [Unknown]
  - Circumstance or information capable of leading to medication error [Unknown]
  - Intentional drug misuse [Unknown]
